FAERS Safety Report 7650558-4 (Version None)
Quarter: 2011Q3

REPORT INFORMATION
  Report Type: 
  Country: None (occurrence: None)
  Receive Date: 20110802
  Receipt Date: 20110720
  Transmission Date: 20111222
  Serious: Yes (Other)
  Sender: FDA-Public Use
  Company Number: US-ASTRAZENECA-2011SE43628

PATIENT
  Age: 526 Month
  Sex: Female

DRUGS (17)
  1. PREDNISONE [Concomitant]
     Dates: start: 20050701
  2. METHOTREXATE [Concomitant]
     Dates: start: 20050212
  3. NEURONTIN [Concomitant]
     Dates: start: 20090501
  4. CELLCEPT [Concomitant]
     Dates: start: 20050701
  5. PREDNISONE [Concomitant]
     Dosage: 50-60 MG
     Dates: start: 20000101
  6. METHOTREXATE [Concomitant]
     Dates: start: 20050501
  7. PREDNISONE [Concomitant]
     Dates: start: 20020212
  8. IMURAN [Concomitant]
     Dates: start: 20000801
  9. ARAVA [Concomitant]
     Dates: start: 20020212
  10. LASIX [Concomitant]
     Dates: start: 20050722
  11. SEROQUEL [Suspect]
     Route: 048
     Dates: start: 20020212
  12. PEPCID [Concomitant]
     Dates: start: 20050722
  13. METHOTREXATE [Concomitant]
     Dates: start: 20000901
  14. ARAVA [Concomitant]
     Dates: start: 20011201
  15. REMERON [Concomitant]
     Dates: start: 20020212
  16. CLONAZEPAM [Concomitant]
     Dates: start: 20020212
  17. PAMELOR [Concomitant]
     Dates: start: 20050722

REACTIONS (6)
  - DIABETIC NEUROPATHY [None]
  - HYPOAESTHESIA [None]
  - WEIGHT INCREASED [None]
  - DIABETES MELLITUS [None]
  - HYPERTENSION [None]
  - HYPERCHOLESTEROLAEMIA [None]
